FAERS Safety Report 10047006 (Version 2)
Quarter: 2014Q2

REPORT INFORMATION
  Report Type: Spontaneous
  Country: FR (occurrence: None)
  Receive Date: 20140327
  Receipt Date: 20140516
  Transmission Date: 20141212
  Serious: Yes (Life-Threatening)
  Sender: FDA-Public Use
  Company Number: 2248890

PATIENT
  Age: 54 Year
  Sex: Female

DRUGS (3)
  1. CARBOPLATIN [Suspect]
     Indication: OVARIAN CANCER
     Dosage: 470 MG MILLILGRAM(S), UNKNOWN, INTRAVENOUS (NOT OTHERWISE SPECIFIED)?9H25 AM?9H30 AM
     Route: 042
     Dates: start: 20140224, end: 20140224
  2. METHYLPREDNISOLONE [Concomitant]
  3. ONDANSETRON [Concomitant]

REACTIONS (2)
  - Anaphylactic shock [None]
  - Respiratory distress [None]
